FAERS Safety Report 16368707 (Version 2)
Quarter: 2019Q3

REPORT INFORMATION
  Report Type: Spontaneous
  Country: JP (occurrence: JP)
  Receive Date: 20190529
  Receipt Date: 20190719
  Transmission Date: 20191004
  Serious: Yes (Other)
  Sender: FDA-Public Use
  Company Number: JP-ANIPHARMA-2018-JP-000201

PATIENT
  Age: 76 Year
  Sex: Female

DRUGS (1)
  1. CANDESARTAN CILEXETIL. [Suspect]
     Active Substance: CANDESARTAN CILEXETIL
     Indication: BLOOD PRESSURE INCREASED
     Dosage: 4 MG, QD, AFTER BREAKFAST / DOSE TEXT: 4 MG, QD, BEFORE BEDTIME / DOSE TEXT: 8 MG,QD, BEFORE BEDTIME
     Route: 048
     Dates: start: 201807

REACTIONS (12)
  - Eczema [Unknown]
  - Blood pressure inadequately controlled [Unknown]
  - Visual impairment [Unknown]
  - Dizziness [Unknown]
  - Labile blood pressure [Unknown]
  - Erythema [Unknown]
  - IVth nerve paralysis [Unknown]
  - Face oedema [Unknown]
  - Pruritus [Unknown]
  - Blood pressure increased [Unknown]
  - Irritability [Unknown]
  - Oedema peripheral [Unknown]

NARRATIVE: CASE EVENT DATE: 2017
